FAERS Safety Report 12962908 (Version 1)
Quarter: 2016Q4

REPORT INFORMATION
  Report Type: Spontaneous
  Country: GB (occurrence: GB)
  Receive Date: 20161122
  Receipt Date: 20161122
  Transmission Date: 20170207
  Serious: Yes (Other)
  Sender: FDA-Public Use
  Company Number: GB-BAXTER-2016BAX058350

PATIENT
  Sex: Female

DRUGS (4)
  1. SODIUM CHLORIDE INTRAVENOUS INFUSION BP 0.9% W/V [Suspect]
     Active Substance: SODIUM CHLORIDE
     Indication: MEDICATION DILUTION
     Dosage: NEBULISE
     Route: 055
  2. TERBUTALINE SULFATE. [Suspect]
     Active Substance: TERBUTALINE SULFATE
     Dosage: NEBULISED MORE THAN NORMAL
     Route: 055
  3. SODIUM CHLORIDE INTRAVENOUS INFUSION BP 0.9% W/V [Suspect]
     Active Substance: SODIUM CHLORIDE
     Dosage: NEBULISED MORE THAN NORMAL
     Route: 055
  4. TERBUTALINE SULFATE. [Suspect]
     Active Substance: TERBUTALINE SULFATE
     Indication: ASTHMA
     Dosage: NEBULISE
     Route: 055

REACTIONS (5)
  - Lower respiratory tract infection [Unknown]
  - Device infusion issue [Unknown]
  - Nervousness [Unknown]
  - Asthma [Recovered/Resolved]
  - Drug dose omission [Unknown]
